FAERS Safety Report 18381772 (Version 1)
Quarter: 2020Q4

REPORT INFORMATION
  Report Type: Spontaneous
  Country: AT (occurrence: AT)
  Receive Date: 20201014
  Receipt Date: 20201014
  Transmission Date: 20210114
  Serious: Yes (Hospitalization, Other)
  Sender: FDA-Public Use
  Company Number: AT-ELI_LILLY_AND_COMPANY-AT202010002278

PATIENT
  Age: 7 Year
  Sex: Male

DRUGS (3)
  1. INTUNIV [Concomitant]
     Active Substance: GUANFACINE HYDROCHLORIDE
     Indication: ATTENTION DEFICIT HYPERACTIVITY DISORDER
     Dosage: UNK
     Dates: start: 202001
  2. ATOMOXETINE HYDROCHLORIDE. [Suspect]
     Active Substance: ATOMOXETINE HYDROCHLORIDE
     Indication: ATTENTION DEFICIT HYPERACTIVITY DISORDER
     Dosage: UNK UNK, UNKNOWN
     Route: 065
     Dates: start: 201501
  3. LISDEXAMFETAMINE [Concomitant]
     Active Substance: LISDEXAMFETAMINE
     Indication: ATTENTION DEFICIT HYPERACTIVITY DISORDER
     Dosage: UNK
     Dates: start: 202004

REACTIONS (10)
  - Seizure [Recovered/Resolved]
  - Glycosylated haemoglobin increased [Recovered/Resolved]
  - Hypoglycaemia [Recovered/Resolved]
  - Diabetic ketoacidosis [Recovered/Resolved]
  - Diabetic ketoacidosis [Recovered/Resolved]
  - Restlessness [Unknown]
  - Hypoglycaemia [Recovered/Resolved]
  - Glycosylated haemoglobin increased [Recovered/Resolved]
  - Behaviour disorder [Recovered/Resolved]
  - Drug ineffective [Unknown]

NARRATIVE: CASE EVENT DATE: 2015
